FAERS Safety Report 23636726 (Version 1)
Quarter: 2024Q1

REPORT INFORMATION
  Report Type: Spontaneous
  Country: JP (occurrence: JP)
  Receive Date: 20240315
  Receipt Date: 20240315
  Transmission Date: 20240410
  Serious: Yes (Other)
  Sender: FDA-Public Use
  Company Number: JP-PFIZER INC-PV202400034462

PATIENT
  Age: 47 Year
  Sex: Male

DRUGS (1)
  1. LORBRENA [Suspect]
     Active Substance: LORLATINIB
     Dosage: 100 MG, DAILY
     Route: 048

REACTIONS (3)
  - Dyslipidaemia [Unknown]
  - Condition aggravated [Unknown]
  - Memory impairment [Unknown]

NARRATIVE: CASE EVENT DATE: 20240308
